FAERS Safety Report 7468566-5 (Version None)
Quarter: 2011Q2

REPORT INFORMATION
  Report Type: 
  Country: None (occurrence: None)
  Receive Date: 20110509
  Receipt Date: 20110505
  Transmission Date: 20111010
  Serious: Yes (Other)
  Sender: FDA-Public Use
  Company Number: AU-BRISTOL-MYERS SQUIBB COMPANY-15184237

PATIENT
  Age: 55 Year
  Sex: Male

DRUGS (18)
  1. TRUVADA [Suspect]
     Dosage: 1DF=1TABLET
     Dates: start: 20030101
  2. CRESTOR [Concomitant]
     Dosage: 1 NOCTE.TABLET
  3. FLUCONAZOLE [Concomitant]
     Dosage: CAPSULE
  4. SERETIDE [Suspect]
  5. KALMA [Concomitant]
     Dosage: TABLET
  6. DIPROSONE [Suspect]
     Dosage: CREAM
  7. DIAZEPAM [Concomitant]
     Dosage: TABLET
  8. RITONAVIR [Suspect]
     Dosage: TABLET
     Dates: start: 20030101
  9. SYMBICORT [Suspect]
     Dosage: 1DF=1-2PUFFS
  10. ASPIRIN [Concomitant]
     Dosage: TABLET
  11. CYMBALTA [Concomitant]
     Dosage: CAPSULE
  12. DOLOXENE [Concomitant]
     Dosage: CAPSULE
  13. PERINDOPRIL [Concomitant]
     Dates: end: 20110201
  14. DILATREND [Concomitant]
     Dosage: TABLET
  15. REYATAZ [Suspect]
     Dates: start: 20030101
  16. DEPTRAN [Concomitant]
     Dosage: CAPSULE.3 NOCTE
  17. EZETIMIBE [Concomitant]
     Dosage: TABLET
  18. SPIRIVA [Concomitant]
     Dosage: POWDER FOR INHALATION
     Route: 055

REACTIONS (3)
  - CUSHINGOID [None]
  - LIPODYSTROPHY ACQUIRED [None]
  - CHRONIC OBSTRUCTIVE PULMONARY DISEASE [None]
